FAERS Safety Report 5989289-5 (Version None)
Quarter: 2008Q4

REPORT INFORMATION
  Report Type: 
  Country: None (occurrence: None)
  Receive Date: 20081205
  Receipt Date: 20081128
  Transmission Date: 20090506
  Serious: Yes (Hospitalization)
  Sender: FDA-Public Use
  Company Number: 2008-00001-212

PATIENT
  Sex: Male
  Weight: 65.5 kg

DRUGS (2)
  1. PEG-IFN A-2B INJ WEEKLY [Suspect]
     Indication: HEPATITIS C
     Dosage: INJ WEEKLY
     Route: 051
  2. RIBAVIRIN [Suspect]
     Dosage: 200 MG/TAB BID, PO
     Route: 048

REACTIONS (4)
  - CHOLELITHIASIS [None]
  - DUODENAL ULCER [None]
  - LUNG INFILTRATION [None]
  - SEPSIS [None]
